FAERS Safety Report 23558188 (Version 2)
Quarter: 2025Q2

REPORT INFORMATION
  Report Type: Report from Study
  Country: US (occurrence: US)
  Receive Date: 20240223
  Receipt Date: 20250506
  Transmission Date: 20250716
  Serious: Yes (Death)
  Sender: ROCHE
  Company Number: US-ROCHE-3495137

PATIENT
  Age: 91 Year
  Sex: Female

DRUGS (24)
  1. ACTEMRA [Suspect]
     Active Substance: TOCILIZUMAB
     Indication: Giant cell arteritis
     Dosage: STRENGTH: 162 MG/0.9 ML.
     Route: 058
  2. VENTOLIN [Concomitant]
     Active Substance: ALBUTEROL SULFATE
  3. FOSAMAX [Concomitant]
     Active Substance: ALENDRONATE SODIUM
  4. ELIQUIS [Concomitant]
     Active Substance: APIXABAN
  5. ASPIRIN [Concomitant]
     Active Substance: ASPIRIN
  6. VITAMIN D3 [Concomitant]
     Active Substance: CHOLECALCIFEROL
  7. LANOXIN [Concomitant]
     Active Substance: DIGOXIN
  8. CARDIZEM [Concomitant]
     Active Substance: DILTIAZEM HYDROCHLORIDE
  9. CARTIA XT [Concomitant]
     Active Substance: DILTIAZEM HYDROCHLORIDE
  10. PEPCID [Concomitant]
     Active Substance: FAMOTIDINE
  11. ALLEGRA [Concomitant]
     Active Substance: FEXOFENADINE HYDROCHLORIDE
  12. LASIX [Concomitant]
     Active Substance: FUROSEMIDE
  13. NEURONTIN [Concomitant]
     Active Substance: GABAPENTIN
  14. APRESOLINE HYDROCHLORIDE [Concomitant]
     Active Substance: HYDRALAZINE HYDROCHLORIDE
  15. HYDROXYCHLOROQUINE [Concomitant]
     Active Substance: HYDROXYCHLOROQUINE
  16. XALATAN [Concomitant]
     Active Substance: LATANOPROST
  17. SYNTHROID [Concomitant]
     Active Substance: LEVOTHYROXINE SODIUM
  18. COZAAR [Concomitant]
     Active Substance: LOSARTAN POTASSIUM
  19. LOPRESSOR [Concomitant]
     Active Substance: METOPROLOL TARTRATE
  20. POTASSIUM CHLORIDE [Concomitant]
     Active Substance: POTASSIUM CHLORIDE
  21. DELTASONE [Concomitant]
     Active Substance: PREDNISONE
  22. METAMUCIL [Concomitant]
     Active Substance: PLANTAGO SEED
  23. ALDACTONE [Concomitant]
     Active Substance: SPIRONOLACTONE
  24. VYNDAMAX [Concomitant]
     Active Substance: TAFAMIDIS

REACTIONS (1)
  - Death [Fatal]

NARRATIVE: CASE EVENT DATE: 20231218
